FAERS Safety Report 13301203 (Version 1)
Quarter: 2017Q1

REPORT INFORMATION
  Report Type: Spontaneous
  Country: US (occurrence: US)
  Receive Date: 20170306
  Receipt Date: 20170306
  Transmission Date: 20170428
  Serious: No
  Sender: FDA-Public Use
  Company Number: None

PATIENT
  Age: 24 Year
  Sex: Female
  Weight: 51.75 kg

DRUGS (3)
  1. MAGNESIUM [Concomitant]
     Active Substance: MAGNESIUM
  2. ADDERALL [Suspect]
     Active Substance: AMPHETAMINE ASPARTATE\AMPHETAMINE SULFATE\DEXTROAMPHETAMINE SACCHARATE\DEXTROAMPHETAMINE SULFATE
     Indication: ATTENTION DEFICIT/HYPERACTIVITY DISORDER
     Dosage: ?          QUANTITY:1 CAPSULE(S);?
     Route: 048
  3. CURAMIN [Concomitant]
     Active Substance: HERBALS

REACTIONS (7)
  - Disturbance in attention [None]
  - Quality of life decreased [None]
  - Drug ineffective [None]
  - Feeling abnormal [None]
  - Irritability [None]
  - Fatigue [None]
  - Product colour issue [None]

NARRATIVE: CASE EVENT DATE: 20170306
